FAERS Safety Report 12062387 (Version 1)
Quarter: 2016Q1

REPORT INFORMATION
  Report Type: Spontaneous
  Country: US (occurrence: US)
  Receive Date: 20160210
  Receipt Date: 20160210
  Transmission Date: 20160526
  Serious: No
  Sender: FDA-Public Use
  Company Number: US-MEDA-2016010137

PATIENT
  Age: 35 Year
  Sex: Female
  Weight: 61 kg

DRUGS (24)
  1. SKELAXIN [Concomitant]
     Active Substance: METAXALONE
     Indication: COMPLEX REGIONAL PAIN SYNDROME
     Dates: start: 2016
  2. SKELAXIN [Concomitant]
     Active Substance: METAXALONE
     Indication: DYSTONIA
     Dates: start: 2011, end: 2013
  3. CARISOPRODOL. [Suspect]
     Active Substance: CARISOPRODOL
     Indication: TREMOR
     Dates: start: 20160106, end: 201601
  4. SKELAXIN [Concomitant]
     Active Substance: METAXALONE
     Indication: COMPLEX REGIONAL PAIN SYNDROME
     Dates: start: 2011, end: 2013
  5. COGENTIN [Concomitant]
     Active Substance: BENZTROPINE MESYLATE
     Indication: DYSTONIA
     Dates: start: 201510
  6. SKELAXIN [Concomitant]
     Active Substance: METAXALONE
     Indication: COMPLEX REGIONAL PAIN SYNDROME
     Dates: start: 2009, end: 2011
  7. SKELAXIN [Concomitant]
     Active Substance: METAXALONE
     Indication: POST-TRAUMATIC STRESS DISORDER
     Dates: start: 2016
  8. SKELAXIN [Concomitant]
     Active Substance: METAXALONE
     Indication: DYSTONIA
     Dates: start: 2014, end: 201512
  9. SKELAXIN [Concomitant]
     Active Substance: METAXALONE
     Indication: DYSTONIA
     Dates: start: 2016
  10. SKELAXIN [Concomitant]
     Active Substance: METAXALONE
     Indication: DYSTONIA
     Dates: start: 2009, end: 2011
  11. SKELAXIN [Concomitant]
     Active Substance: METAXALONE
     Indication: POST-TRAUMATIC STRESS DISORDER
     Dates: start: 2009, end: 2011
  12. BACLOFEN. [Concomitant]
     Active Substance: BACLOFEN
     Dates: start: 2015, end: 2015
  13. CARISOPRODOL. [Suspect]
     Active Substance: CARISOPRODOL
     Indication: TREMOR
     Dates: start: 201601
  14. SKELAXIN [Concomitant]
     Active Substance: METAXALONE
     Indication: COMPLEX REGIONAL PAIN SYNDROME
     Dates: start: 201512, end: 201601
  15. SKELAXIN [Concomitant]
     Active Substance: METAXALONE
     Indication: DYSTONIA
     Dates: start: 201512, end: 201601
  16. KLONOPIN [Concomitant]
     Active Substance: CLONAZEPAM
     Indication: ANXIOLYTIC THERAPY
     Dates: start: 2006
  17. SKELAXIN [Concomitant]
     Active Substance: METAXALONE
     Indication: COMPLEX REGIONAL PAIN SYNDROME
     Dates: start: 2014, end: 201512
  18. SKELAXIN [Concomitant]
     Active Substance: METAXALONE
     Indication: POST-TRAUMATIC STRESS DISORDER
     Dates: start: 2011, end: 2013
  19. NEURONTIN [Concomitant]
     Active Substance: GABAPENTIN
     Indication: NEURALGIA
     Dates: start: 2009
  20. SKELAXIN [Concomitant]
     Active Substance: METAXALONE
     Indication: POST-TRAUMATIC STRESS DISORDER
     Dates: start: 2014, end: 201512
  21. SKELAXIN [Concomitant]
     Active Substance: METAXALONE
     Indication: POST-TRAUMATIC STRESS DISORDER
     Dates: start: 201512, end: 201601
  22. ADDERALL XR [Concomitant]
     Active Substance: AMPHETAMINE ASPARTATE\AMPHETAMINE SULFATE\DEXTROAMPHETAMINE SACCHARATE\DEXTROAMPHETAMINE SULFATE
     Indication: ATTENTION DEFICIT/HYPERACTIVITY DISORDER
     Dates: start: 2004
  23. NEURONTIN [Concomitant]
     Active Substance: GABAPENTIN
     Indication: NEURALGIA
     Dates: start: 2009
  24. ATIVAN [Concomitant]
     Active Substance: LORAZEPAM
     Route: 030

REACTIONS (2)
  - Drug ineffective [Unknown]
  - Fatigue [Unknown]

NARRATIVE: CASE EVENT DATE: 20160106
